FAERS Safety Report 5116612-6 (Version None)
Quarter: 2006Q3

REPORT INFORMATION
  Report Type: 
  Country: None (occurrence: None)
  Receive Date: 20060928
  Receipt Date: 20060628
  Transmission Date: 20061208
  Serious: Yes (Death, Hospitalization)
  Sender: FDA-Public Use
  Company Number: KR-AVENTIS-200616791GDDC

PATIENT
  Age: 61 Year
  Sex: Female
  Weight: 59.4 kg

DRUGS (4)
  1. TAXOTERE [Suspect]
     Indication: NON-SMALL CELL LUNG CANCER
     Route: 042
     Dates: start: 20060512, end: 20060609
  2. CISPLATIN [Suspect]
     Indication: NON-SMALL CELL LUNG CANCER
     Route: 042
     Dates: start: 20060512, end: 20060609
  3. NORVASC [Concomitant]
     Indication: HYPERTENSION
     Dosage: DOSE: 5 MG
     Route: 048
     Dates: start: 20060605, end: 20060812
  4. OXYCONTIN [Concomitant]
     Indication: COUGH
     Route: 048
     Dates: start: 20060401, end: 20060812

REACTIONS (6)
  - BLOOD CREATININE INCREASED [None]
  - DYSPNOEA [None]
  - FEBRILE NEUTROPENIA [None]
  - MYALGIA [None]
  - PNEUMONIA [None]
  - RENAL FAILURE ACUTE [None]
